APPROVED DRUG PRODUCT: CYCLOPHOSPHAMIDE
Active Ingredient: CYCLOPHOSPHAMIDE
Strength: 50MG
Dosage Form/Route: CAPSULE;ORAL
Application: A209872 | Product #002 | TE Code: AB
Applicant: SENORES PHARMACEUTICALS INC
Approved: May 7, 2018 | RLD: No | RS: No | Type: RX